FAERS Safety Report 20526592 (Version 1)
Quarter: 2022Q1

REPORT INFORMATION
  Report Type: Spontaneous
  Country: US (occurrence: None)
  Receive Date: 20220226
  Receipt Date: 20220226
  Transmission Date: 20220423
  Serious: Yes (Other)
  Sender: FDA-Public Use
  Company Number: None

PATIENT
  Age: 52 Year
  Sex: Female
  Weight: 84.15 kg

DRUGS (17)
  1. CYMBALTA [Suspect]
     Active Substance: DULOXETINE HYDROCHLORIDE
     Indication: Major depression
     Dosage: OTHER QUANTITY : 2 TABLET(S);?
     Route: 048
  2. CYMBALTA [Suspect]
     Active Substance: DULOXETINE HYDROCHLORIDE
     Indication: Anxiety
  3. CPAP MACHINE [Concomitant]
  4. LAMICTAL [Concomitant]
  5. BUSPAR [Concomitant]
     Active Substance: BUSPIRONE HYDROCHLORIDE
  6. CLONAZEPAM [Concomitant]
  7. PRAZOSIN [Concomitant]
  8. ARMOUR THYROID [Concomitant]
  9. UNSPECIFIED INGREDIENT [Concomitant]
     Active Substance: UNSPECIFIED INGREDIENT
  10. PROPRANOLOL [Concomitant]
  11. TYLENOL [Concomitant]
  12. MOTRIN [Concomitant]
     Active Substance: IBUPROFEN
  13. MULTI VITAMIN [Concomitant]
  14. VITAMIN D [Concomitant]
     Active Substance: VITAMIN D NOS
  15. VITAMIN B12 [Concomitant]
     Active Substance: CYANOCOBALAMIN
  16. CALCIUM [Concomitant]
  17. MAGNESIUM [Concomitant]

REACTIONS (3)
  - Akathisia [None]
  - Tardive dyskinesia [None]
  - Tardive dyskinesia [None]

NARRATIVE: CASE EVENT DATE: 20190801
